FAERS Safety Report 5470160-2 (Version None)
Quarter: 2007Q3

REPORT INFORMATION
  Report Type: 
  Country: None (occurrence: None)
  Receive Date: 20070927
  Receipt Date: 20070925
  Transmission Date: 20080115
  Serious: Yes (Life-Threatening, Hospitalization)
  Sender: FDA-Public Use
  Company Number: HQWYE312825SEP07

PATIENT
  Sex: Male

DRUGS (5)
  1. CORDARONE [Suspect]
     Indication: ATRIOVENTRICULAR BLOCK SECOND DEGREE
     Route: 048
  2. PROSCAR [Concomitant]
     Indication: BENIGN PROSTATIC HYPERPLASIA
     Route: 048
  3. RENITEC [Concomitant]
     Indication: HYPERTENSION
     Route: 048
  4. PREVISCAN [Concomitant]
     Indication: PROPHYLAXIS
     Route: 048
     Dates: end: 20070222
  5. LASIX [Concomitant]
     Indication: HYPERTENSION
     Route: 048

REACTIONS (1)
  - HAEMORRHAGIC STROKE [None]
